FAERS Safety Report 21118791 (Version 1)
Quarter: 2022Q3

REPORT INFORMATION
  Report Type: Spontaneous
  Country: US (occurrence: None)
  Receive Date: 20220721
  Receipt Date: 20220721
  Transmission Date: 20221026
  Serious: No
  Sender: FDA-Public Use
  Company Number: None

PATIENT
  Age: 55 Year
  Sex: Female
  Weight: 70.65 kg

DRUGS (5)
  1. PAXLOVID [Suspect]
     Active Substance: NIRMATRELVIR\RITONAVIR
     Indication: COVID-19 treatment
     Dosage: OTHER QUANTITY : 3 TABLET(S);?FREQUENCY : TWICE A DAY;?
     Route: 048
     Dates: start: 20220630, end: 20220705
  2. BLACK COHOSH [Concomitant]
     Active Substance: BLACK COHOSH
  3. ANGELICA SINENSIS ROOT [Concomitant]
     Active Substance: ANGELICA SINENSIS ROOT
  4. ECHINACEA [Concomitant]
     Active Substance: ECHINACEA, UNSPECIFIED
  5. MAGNESIUM GLYCINATE [Concomitant]
     Active Substance: MAGNESIUM GLYCINATE

REACTIONS (4)
  - Oropharyngeal pain [None]
  - Fatigue [None]
  - Symptom recurrence [None]
  - SARS-CoV-2 test positive [None]

NARRATIVE: CASE EVENT DATE: 20220711
